FAERS Safety Report 18176054 (Version 1)
Quarter: 2020Q3

REPORT INFORMATION
  Report Type: Spontaneous
  Country: BR (occurrence: BR)
  Receive Date: 20200820
  Receipt Date: 20200820
  Transmission Date: 20201103
  Serious: Yes (Other)
  Sender: FDA-Public Use
  Company Number: BR-TEVA-2020-BR-1815008

PATIENT
  Age: 42 Year
  Sex: Male

DRUGS (9)
  1. OXALIPLATIN. [Suspect]
     Active Substance: OXALIPLATIN
     Indication: RECTAL ADENOCARCINOMA
     Dosage: DURING THIRD PROTOCOL CHEMOTHERAPY
     Route: 050
     Dates: start: 2016
  2. CALCIUM FOLINATE [Suspect]
     Active Substance: LEUCOVORIN CALCIUM
     Indication: ADENOCARCINOMA OF COLON
     Dosage: AS PER FLOX PROTOCOL, AT INTERVALS OF 15 DAYS BETWEEN CYCLES; 12 CYCLES IN TOTAL
     Route: 065
     Dates: start: 201504, end: 201511
  3. FLUOROURACIL. [Suspect]
     Active Substance: FLUOROURACIL
     Indication: RECTAL ADENOCARCINOMA
     Dosage: AS PER FLOX PROTOCOL, AT INTERVALS OF 15 DAYS BETWEEN CYCLES; 12 CYCLES IN TOTAL
     Route: 065
     Dates: start: 201504, end: 201511
  4. MINERAL?OIL [Concomitant]
     Indication: CONSTIPATION
     Route: 065
  5. CALCIUM FOLINATE [Suspect]
     Active Substance: LEUCOVORIN CALCIUM
     Indication: RECTAL ADENOCARCINOMA
  6. FLUOROURACIL. [Suspect]
     Active Substance: FLUOROURACIL
     Indication: ADENOCARCINOMA OF COLON
     Dosage: 620 MG (5 DAYS), TWO CYCLE PERFORMED
     Route: 065
     Dates: start: 201306
  7. OXALIPLATIN. [Suspect]
     Active Substance: OXALIPLATIN
     Indication: ADENOCARCINOMA OF COLON
     Dosage: AS PER FLOX PROTOCOL, AT INTERVALS OF 15 DAYS BETWEEN CYCLES; 12 CYCLES IN TOTAL
     Route: 050
     Dates: start: 201504, end: 201511
  8. IRINOTECAN [Suspect]
     Active Substance: IRINOTECAN
     Indication: ADENOCARCINOMA OF COLON
     Dosage: DURING THIRD PROTOCOL CHEMOTHERAPY
     Route: 065
  9. IRINOTECAN [Suspect]
     Active Substance: IRINOTECAN
     Indication: RECTAL ADENOCARCINOMA

REACTIONS (11)
  - Chest pain [Recovering/Resolving]
  - Injection site urticaria [Recovering/Resolving]
  - Hepatotoxicity [Recovering/Resolving]
  - Papule [Recovering/Resolving]
  - Liver injury [Recovering/Resolving]
  - Anxiety [Unknown]
  - Pruritus [Recovering/Resolving]
  - Burning sensation [Unknown]
  - Palpitations [Unknown]
  - Flushing [Recovering/Resolving]
  - Vomiting [Recovering/Resolving]

NARRATIVE: CASE EVENT DATE: 201503
